FAERS Safety Report 6784966-0 (Version None)
Quarter: 2010Q2

REPORT INFORMATION
  Report Type: 
  Country: None (occurrence: None)
  Receive Date: 20100618
  Receipt Date: 20100607
  Transmission Date: 20101027
  Serious: Yes (Hospitalization)
  Sender: FDA-Public Use
  Company Number: LEO-2010-00491

PATIENT
  Age: 76 Year
  Sex: Female

DRUGS (2)
  1. INNOHEP [Suspect]
     Indication: ANTICOAGULANT THERAPY
     Dosage: 4500 IU, SUBCUTANEOUS
     Route: 058
     Dates: start: 20100604, end: 20100605
  2. PREVISCAN (FLUINDI-ONE) [Concomitant]

REACTIONS (5)
  - ABDOMINAL DISTENSION [None]
  - MALAISE [None]
  - NAUSEA [None]
  - OFF LABEL USE [None]
  - VOMITING [None]
